FAERS Safety Report 11824039 (Version 2)
Quarter: 2016Q1

REPORT INFORMATION
  Report Type: Spontaneous
  Country: DE (occurrence: DE)
  Receive Date: 20151210
  Receipt Date: 20160119
  Transmission Date: 20160525
  Serious: Yes (Other)
  Sender: FDA-Public Use
  Company Number: DE-TEVA-614795GER

PATIENT
  Age: 75 Year
  Sex: Male

DRUGS (2)
  1. ATORVASTATIN ABZ 40 MG FILMTABLETTEN [Suspect]
     Active Substance: ATORVASTATIN
     Indication: HYPERCHOLESTEROLAEMIA
  2. ATORVASTATIN ABZ 40 MG FILMTABLETTEN [Suspect]
     Active Substance: ATORVASTATIN
     Indication: LIPIDS INCREASED
     Dosage: 40 MILLIGRAM DAILY; IN THE EVENING
     Route: 048
     Dates: start: 20151110, end: 20151125

REACTIONS (1)
  - Blood pressure increased [Recovered/Resolved]

NARRATIVE: CASE EVENT DATE: 20151110
